FAERS Safety Report 4349887-1 (Version None)
Quarter: 2004Q2

REPORT INFORMATION
  Report Type: 
  Country: None (occurrence: None)
  Receive Date: 20040426
  Receipt Date: 20040409
  Transmission Date: 20050107
  Serious: Yes (Hospitalization)
  Sender: FDA-Public Use
  Company Number: MAG-2002-0000045

PATIENT
  Age: 77 Year
  Sex: Female

DRUGS (5)
  1. POVIDONE IODINE [Suspect]
     Indication: EYE OPERATION
     Dosage: OPTHALMIC
     Route: 047
     Dates: start: 20020312, end: 20030312
  2. XYLOCAINE [Suspect]
     Indication: EYE OPERATION
     Dates: start: 20020312, end: 20020312
  3. DUOVISC [Suspect]
     Dates: start: 20020312, end: 20020312
  4. BSS [Suspect]
     Dates: start: 20020312, end: 20020312
  5. STER-DEX (DEXAMETHASONE, OXYTETRACYCLINE) [Suspect]
     Dates: start: 20020312, end: 20020312

REACTIONS (4)
  - ENDOPHTHALMITIS [None]
  - POST PROCEDURAL COMPLICATION [None]
  - STAPHYLOCOCCAL INFECTION [None]
  - UVEITIS [None]
